FAERS Safety Report 5612870-X (Version None)
Quarter: 2008Q1

REPORT INFORMATION
  Report Type: 
  Country: None (occurrence: None)
  Receive Date: 20080204
  Receipt Date: 20080123
  Transmission Date: 20080703
  Serious: Yes (Hospitalization)
  Sender: FDA-Public Use
  Company Number: GB-PFIZER INC-2008008034

PATIENT
  Age: 56 Year
  Sex: Female

DRUGS (4)
  1. HYDROCORTISONE SODIUM SUCCINATE [Suspect]
     Route: 042
  2. RANITIDINE [Suspect]
     Indication: EPIGASTRIC DISCOMFORT
     Dosage: TEXT:50MG
     Route: 042
  3. EPINEPHRINE [Concomitant]
  4. OXYGEN [Concomitant]

REACTIONS (3)
  - ANAPHYLACTIC REACTION [None]
  - CARDIO-RESPIRATORY ARREST [None]
  - DRUG INEFFECTIVE [None]
